FAERS Safety Report 14547991 (Version 1)
Quarter: 2018Q1

REPORT INFORMATION
  Report Type: Report from Study
  Country: TN (occurrence: TN)
  Receive Date: 20180219
  Receipt Date: 20180219
  Transmission Date: 20180509
  Serious: Yes (Death, Hospitalization, Other)
  Sender: FDA-Public Use
  Company Number: TN-MYLANLABS-2018M1011211

PATIENT
  Age: 11 Year

DRUGS (3)
  1. CYTARABINE. [Suspect]
     Active Substance: CYTARABINE
     Indication: ACUTE MYELOID LEUKAEMIA
     Dosage: 200 MG/M2 FOR 7DAYS
     Route: 065
     Dates: start: 200908
  2. MITOXANTRONE [Suspect]
     Active Substance: MITOXANTRONE HYDROCHLORIDE
     Indication: ACUTE MYELOID LEUKAEMIA
     Dosage: 12 MG/M2 FOR 5 DAYS
     Route: 065
     Dates: start: 200908
  3. ETOPOSIDE. [Suspect]
     Active Substance: ETOPOSIDE
     Indication: BACTERIAL INFECTION
     Dosage: 100 MG/M2 FOR 3 DAYS
     Route: 065
     Dates: start: 200908

REACTIONS (4)
  - Geotrichum infection [Fatal]
  - Sepsis [Fatal]
  - Circulatory collapse [Fatal]
  - Respiratory failure [Fatal]
